FAERS Safety Report 21143375 (Version 1)
Quarter: 2022Q3

REPORT INFORMATION
  Report Type: Spontaneous
  Country: CN (occurrence: CN)
  Receive Date: 20220728
  Receipt Date: 20220728
  Transmission Date: 20221027
  Serious: Yes (Other)
  Sender: FDA-Public Use
  Company Number: CN-PFIZER INC-PV202200030623

PATIENT
  Age: 53 Year
  Sex: Male

DRUGS (1)
  1. TOFACITINIB CITRATE [Suspect]
     Active Substance: TOFACITINIB CITRATE
     Indication: Alopecia universalis
     Dosage: 5 MG, DAILY
     Route: 048

REACTIONS (5)
  - Cytokine increased [Recovered/Resolved]
  - Alanine aminotransferase increased [Unknown]
  - Lipids increased [Unknown]
  - Off label use [Unknown]
  - Drug effective for unapproved indication [Unknown]
